FAERS Safety Report 6194302-9 (Version None)
Quarter: 2009Q2

REPORT INFORMATION
  Report Type: 
  Country: None (occurrence: None)
  Receive Date: 20090519
  Receipt Date: 20090513
  Transmission Date: 20091009
  Serious: Yes (Death, Life-Threatening)
  Sender: FDA-Public Use
  Company Number: JP-BRISTOL-MYERS SQUIBB COMPANY-14617724

PATIENT
  Age: 58 Year
  Sex: Male

DRUGS (7)
  1. SPRYCEL [Suspect]
     Indication: ACUTE LYMPHOCYTIC LEUKAEMIA
     Route: 048
     Dates: start: 20090323, end: 20090406
  2. IMATINIB MESILATE [Suspect]
     Indication: ACUTE LYMPHOCYTIC LEUKAEMIA
     Dosage: ON 31JAN08,IMATINIB 600 MG/DAY; 27DEC08-31DEC08, IMATINIB 400 MG/DAY; 24APR09, 600 MG.
     Dates: start: 20090424, end: 20090424
  3. PREDNISOLONE [Concomitant]
     Route: 048
     Dates: start: 20090102
  4. BAKTAR [Concomitant]
     Route: 048
     Dates: start: 20080205
  5. VFEND [Concomitant]
     Route: 048
  6. ZOVIRAX [Concomitant]
     Route: 048
  7. DENOSINE [Concomitant]
     Route: 048
     Dates: start: 20090401, end: 20090408

REACTIONS (4)
  - INTERSTITIAL LUNG DISEASE [None]
  - PERICARDIAL EFFUSION [None]
  - PLEURAL EFFUSION [None]
  - RENAL FAILURE [None]
